FAERS Safety Report 6697739-4 (Version None)
Quarter: 2010Q2

REPORT INFORMATION
  Report Type: 
  Country: None (occurrence: None)
  Receive Date: 20100423
  Receipt Date: 20100412
  Transmission Date: 20101027
  Serious: Yes (Other)
  Sender: FDA-Public Use
  Company Number: 231528J10USA

PATIENT
  Age: 50 Year
  Sex: Female
  Weight: 89 kg

DRUGS (9)
  1. REBIF [Suspect]
     Indication: MULTIPLE SCLEROSIS
     Dosage: 44 MCG, 3 IN 1 WK, SUBCUTANEOUS
     Route: 058
     Dates: start: 20070314
  2. TOPAMAX [Concomitant]
  3. LYRICA [Concomitant]
  4. OXCARBAZEPINE (OXACARBAZEPINE) [Concomitant]
  5. FLEXERIL [Concomitant]
  6. POTASSIUM (POTASSIUM) [Concomitant]
  7. NAPROSYN [Concomitant]
  8. DETROL [Concomitant]
  9. MULTI-VITAMINS [Concomitant]

REACTIONS (3)
  - CARDIOMEGALY [None]
  - HEADACHE [None]
  - LOSS OF CONSCIOUSNESS [None]
